FAERS Safety Report 23576900 (Version 1)
Quarter: 2024Q1

REPORT INFORMATION
  Report Type: Spontaneous
  Country: US (occurrence: US)
  Receive Date: 20240228
  Receipt Date: 20240228
  Transmission Date: 20240410
  Serious: Yes (Other)
  Sender: FDA-Public Use
  Company Number: US-Amarin Pharma  Inc-2024AMR000073

PATIENT
  Age: 58 Year
  Sex: Male

DRUGS (7)
  1. VASCEPA [Suspect]
     Active Substance: ICOSAPENT ETHYL
     Indication: Blood triglycerides increased
     Route: 048
  2. VASCEPA [Suspect]
     Active Substance: ICOSAPENT ETHYL
     Indication: Cardiovascular event prophylaxis
  3. LOSARTAN [Concomitant]
     Active Substance: LOSARTAN
  4. ATENOLOL [Concomitant]
     Active Substance: ATENOLOL
  5. METFORMIN [Concomitant]
     Active Substance: METFORMIN HYDROCHLORIDE
     Indication: Diabetes mellitus
  6. JARDIANCE [Concomitant]
     Active Substance: EMPAGLIFLOZIN
     Indication: Product used for unknown indication
  7. PRAVASTATIN [Concomitant]
     Active Substance: PRAVASTATIN
     Indication: Product used for unknown indication

REACTIONS (6)
  - Choking [Unknown]
  - Poor quality product administered [Unknown]
  - Product size issue [Unknown]
  - Product odour abnormal [Unknown]
  - Product physical issue [Unknown]
  - Product colour issue [Unknown]
